FAERS Safety Report 18675340 (Version 2)
Quarter: 2021Q3

REPORT INFORMATION
  Report Type: Other
  Country: CL (occurrence: CL)
  Receive Date: 20201229
  Receipt Date: 20210823
  Transmission Date: 20211014
  Serious: Yes (Other)
  Sender: FDA-Public Use
  Company Number: CL-ROCHE-2712275

PATIENT
  Age: 41 Year
  Sex: Female

DRUGS (2)
  1. PERJETA [Suspect]
     Active Substance: PERTUZUMAB
     Indication: BREAST CANCER METASTATIC
     Route: 042
  2. HERCEPTIN [Suspect]
     Active Substance: TRASTUZUMAB
     Indication: BREAST CANCER METASTATIC
     Route: 058

REACTIONS (16)
  - Eye pruritus [Unknown]
  - Pruritus [Unknown]
  - Nasal pruritus [Unknown]
  - Vomiting [Recovered/Resolved]
  - Blindness unilateral [Unknown]
  - Diarrhoea [Recovered/Resolved]
  - Epistaxis [Unknown]
  - Dizziness [Unknown]
  - Hypercoagulation [Unknown]
  - Administration site extravasation [Unknown]
  - Lacrimation decreased [Unknown]
  - Ocular discomfort [Unknown]
  - Discomfort [Unknown]
  - Ocular cancer metastatic [Unknown]
  - Nausea [Recovered/Resolved]
  - Vision blurred [Unknown]

NARRATIVE: CASE EVENT DATE: 202012
